FAERS Safety Report 7474419-9 (Version None)
Quarter: 2011Q2

REPORT INFORMATION
  Report Type: 
  Country: None (occurrence: None)
  Receive Date: 20110512
  Receipt Date: 20110415
  Transmission Date: 20111010
  Serious: No
  Sender: FDA-Public Use
  Company Number: US-BAYER-2011-033437

PATIENT
  Age: 50 Year
  Sex: Male

DRUGS (2)
  1. AVELOX [Suspect]
     Indication: INFECTION
     Dosage: 400 MG, QD
     Route: 048
     Dates: start: 20110411, end: 20110414
  2. OMEPRAZOLE [Concomitant]

REACTIONS (3)
  - JOINT SWELLING [None]
  - JOINT RANGE OF MOTION DECREASED [None]
  - ARTHRALGIA [None]
